FAERS Safety Report 12234119 (Version 1)
Quarter: 2016Q2

REPORT INFORMATION
  Report Type: Spontaneous
  Country: US (occurrence: None)
  Receive Date: 20160401
  Receipt Date: 20160401
  Transmission Date: 20160815
  Serious: Yes (Disabling, Other)
  Sender: FDA-Public Use
  Company Number: None

PATIENT
  Age: 46 Year
  Sex: Female
  Weight: 58.06 kg

DRUGS (2)
  1. GENERIC CLARITIN [Concomitant]
  2. AZITHROMYCIN ANHYDROUS. [Suspect]
     Active Substance: AZITHROMYCIN ANHYDROUS
     Indication: SINUS DISORDER
     Dates: start: 20120301, end: 20120310

REACTIONS (17)
  - Skin disorder [None]
  - Prescribed overdose [None]
  - Feeling abnormal [None]
  - Burning sensation [None]
  - Pericardial effusion [None]
  - Blood potassium decreased [None]
  - Fatigue [None]
  - Erythema [None]
  - Impaired work ability [None]
  - Gastric disorder [None]
  - Anxiety [None]
  - Bradyphrenia [None]
  - Oropharyngeal pain [None]
  - Weight decreased [None]
  - Multiple allergies [None]
  - Fungal infection [None]
  - Cholecystitis [None]

NARRATIVE: CASE EVENT DATE: 20120301
